FAERS Safety Report 21908729 (Version 4)
Quarter: 2023Q1

REPORT INFORMATION
  Report Type: Spontaneous
  Country: US (occurrence: US)
  Receive Date: 20230125
  Receipt Date: 20230329
  Transmission Date: 20230417
  Serious: No
  Sender: FDA-Public Use
  Company Number: US-PFIZER INC-PV202300010973

PATIENT
  Age: 13 Year
  Sex: Female
  Weight: 40.82 kg

DRUGS (1)
  1. GENOTROPIN [Suspect]
     Active Substance: SOMATROPIN
     Dosage: UNK

REACTIONS (7)
  - Device breakage [Unknown]
  - Poor quality device used [Unknown]
  - Device defective [Unknown]
  - Device fastener issue [Unknown]
  - Device connection issue [Unknown]
  - Device leakage [Unknown]
  - Drug dose omission by device [Unknown]
